FAERS Safety Report 8373621-1 (Version None)
Quarter: 2012Q2

REPORT INFORMATION
  Report Type: 
  Country: None (occurrence: None)
  Receive Date: 20120521
  Receipt Date: 20120511
  Transmission Date: 20120825
  Serious: Yes (Other)
  Sender: FDA-Public Use
  Company Number: GB-BRISTOL-MYERS SQUIBB COMPANY-16502262

PATIENT
  Age: 66 Year
  Sex: Female

DRUGS (6)
  1. IXABEPILONE [Suspect]
     Indication: ENDOMETRIAL CANCER
     Route: 042
     Dates: start: 20111114, end: 20120221
  2. SIMVASTATIN [Concomitant]
     Dates: start: 20060101
  3. AMLODIPINE BESYLATE [Concomitant]
     Dates: start: 20060101
  4. ACETAMINOPHEN AND CODEINE PHOSPHATE [Concomitant]
     Dates: start: 20090101
  5. SENOKOT [Concomitant]
     Dates: start: 20090101
  6. VENTOLIN DS [Concomitant]
     Dates: start: 20060101

REACTIONS (1)
  - PERIPHERAL SENSORY NEUROPATHY [None]
